FAERS Safety Report 13037455 (Version 1)
Quarter: 2016Q4

REPORT INFORMATION
  Report Type: Spontaneous
  Country: US (occurrence: US)
  Receive Date: 20161216
  Receipt Date: 20161216
  Transmission Date: 20170207
  Serious: Yes (Other)
  Sender: FDA-Public Use
  Company Number: US-RELYPSA-RLY2016003573

PATIENT
  Age: 63 Year
  Sex: Female

DRUGS (8)
  1. CALCIUM ACETATE. [Concomitant]
     Active Substance: CALCIUM ACETATE
     Dosage: 667 MG, 2 TABS WITH EACH MEAL
  2. IRON [Concomitant]
     Active Substance: IRON
  3. VITAMIN D                          /00107901/ [Concomitant]
     Active Substance: ERGOCALCIFEROL
  4. VELTASSA [Suspect]
     Active Substance: PATIROMER
     Indication: BLOOD POTASSIUM INCREASED
     Dosage: 8.4 G, QOD
     Route: 065
     Dates: start: 20161026, end: 20161031
  5. HUMALOG [Concomitant]
     Active Substance: INSULIN LISPRO
  6. VELTASSA [Suspect]
     Active Substance: PATIROMER
     Dosage: 8.4 G, ON NON-DIALYSIS DAYS
     Route: 048
     Dates: start: 2016
  7. BABY ASPIRIN [Concomitant]
     Active Substance: ASPIRIN
  8. ATORVASTATIN [Concomitant]
     Active Substance: ATORVASTATIN
     Dosage: 5 MG, QD

REACTIONS (5)
  - Constipation [Recovered/Resolved]
  - Blood pressure increased [Not Recovered/Not Resolved]
  - Malaise [Unknown]
  - Inappropriate schedule of drug administration [Not Recovered/Not Resolved]
  - Headache [Not Recovered/Not Resolved]

NARRATIVE: CASE EVENT DATE: 2016
